FAERS Safety Report 7916970-0 (Version None)
Quarter: 2011Q4

REPORT INFORMATION
  Report Type: 
  Country: None (occurrence: None)
  Receive Date: 20111116
  Receipt Date: 20111116
  Transmission Date: 20120403
  Serious: Yes (Other)
  Sender: FDA-Public Use
  Company Number: None

PATIENT
  Sex: Male
  Weight: 102.05 kg

DRUGS (1)
  1. OXYCONTIN [Suspect]
     Indication: PAIN
     Dosage: 80MG
     Route: 048
     Dates: start: 20111108, end: 20111115

REACTIONS (11)
  - ABDOMINAL PAIN UPPER [None]
  - PAIN IN EXTREMITY [None]
  - MUSCULOSKELETAL PAIN [None]
  - PRODUCT SUBSTITUTION ISSUE [None]
  - FEELING ABNORMAL [None]
  - LUNG DISORDER [None]
  - MUSCLE SPASMS [None]
  - CHEST PAIN [None]
  - DRUG INEFFECTIVE [None]
  - BLADDER PAIN [None]
  - HEADACHE [None]
